FAERS Safety Report 12767602 (Version 1)
Quarter: 2016Q3

REPORT INFORMATION
  Report Type: Spontaneous
  Country: US (occurrence: US)
  Receive Date: 20160921
  Receipt Date: 20160921
  Transmission Date: 20161109
  Serious: No
  Sender: FDA-Public Use
  Company Number: US-PFIZER INC-2016437939

PATIENT
  Age: 64 Year
  Sex: Male
  Weight: 95 kg

DRUGS (5)
  1. NORVASC [Suspect]
     Active Substance: AMLODIPINE BESYLATE
     Indication: HYPERTENSION
     Dosage: 10 MG, 1X/DAY ORALLY
     Route: 048
     Dates: end: 201609
  2. NORVASC [Suspect]
     Active Substance: AMLODIPINE BESYLATE
     Dosage: 5 MG, 1X/DAY
  3. SIMVASTATIN. [Concomitant]
     Active Substance: SIMVASTATIN
     Indication: BLOOD CHOLESTEROL INCREASED
     Dosage: 20 MG, UNK
  4. OMEPRAZOLE. [Concomitant]
     Active Substance: OMEPRAZOLE
     Dosage: UNK, AS NEEDED
  5. METOPROLOL. [Concomitant]
     Active Substance: METOPROLOL
     Dosage: 200 MG,

REACTIONS (1)
  - Oedema [Not Recovered/Not Resolved]

NARRATIVE: CASE EVENT DATE: 201609
